FAERS Safety Report 12959139 (Version 1)
Quarter: 2016Q4

REPORT INFORMATION
  Report Type: Spontaneous
  Country: FR (occurrence: FR)
  Receive Date: 20161121
  Receipt Date: 20161121
  Transmission Date: 20170207
  Serious: Yes (Hospitalization)
  Sender: FDA-Public Use
  Company Number: FR-AUROBINDO-AUR-APL-2016-13937

PATIENT
  Age: 83 Year
  Sex: Male

DRUGS (2)
  1. FLUCONAZOLE ARROW [Suspect]
     Active Substance: FLUCONAZOLE
     Indication: LUNG DISORDER
     Dosage: 200 MG, TWO TIMES A DAY
     Route: 048
     Dates: start: 20161014, end: 20161019
  2. OFLOXACIN ARROW 200MG [Suspect]
     Active Substance: OFLOXACIN
     Indication: LUNG DISORDER
     Dosage: 200 MG, TWO TIMES A DAY
     Route: 048
     Dates: start: 20161006, end: 20161024

REACTIONS (3)
  - Rash morbilliform [Recovering/Resolving]
  - Vomiting [Recovered/Resolved]
  - Nausea [Recovered/Resolved]

NARRATIVE: CASE EVENT DATE: 20161024
